FAERS Safety Report 12671796 (Version 2)
Quarter: 2016Q3

REPORT INFORMATION
  Report Type: Spontaneous
  Country: US (occurrence: US)
  Receive Date: 20160822
  Receipt Date: 20160908
  Transmission Date: 20161109
  Serious: No
  Sender: FDA-Public Use
  Company Number: US-GLAXOSMITHKLINE-US2016GSK114681

PATIENT
  Sex: Male

DRUGS (1)
  1. FLONASE [Suspect]
     Active Substance: FLUTICASONE PROPIONATE
     Dosage: UNK, QD

REACTIONS (3)
  - Drug ineffective [Unknown]
  - Ocular hyperaemia [Unknown]
  - Conjunctivitis allergic [Unknown]
